FAERS Safety Report 20071467 (Version 4)
Quarter: 2022Q4

REPORT INFORMATION
  Report Type: Report from Study
  Country: US (occurrence: US)
  Receive Date: 20211115
  Receipt Date: 20221006
  Transmission Date: 20230113
  Serious: No
  Sender: FDA-Public Use
  Company Number: US-NOVARTISTESTPH-NVSC2021US260696

PATIENT
  Sex: Female

DRUGS (1)
  1. ENTRESTO [Suspect]
     Active Substance: SACUBITRIL\VALSARTAN
     Indication: Cardiac failure congestive
     Dosage: 1 DOSAGE FORM, BID (24/26 MG)
     Route: 048
     Dates: start: 20211019

REACTIONS (4)
  - Feeling abnormal [Recovering/Resolving]
  - Weight fluctuation [Unknown]
  - Body height abnormal [Unknown]
  - Joint swelling [Unknown]

NARRATIVE: CASE EVENT DATE: 20210101
